FAERS Safety Report 8995624 (Version 1)
Quarter: 2013Q1

REPORT INFORMATION
  Report Type: Spontaneous
  Country: US (occurrence: US)
  Receive Date: 20130103
  Receipt Date: 20130103
  Transmission Date: 20140127
  Serious: No
  Sender: FDA-Public Use
  Company Number: US-ABBOTT-12P-163-0889480-00

PATIENT
  Age: 52 Year
  Sex: Female
  Weight: 99.88 kg

DRUGS (3)
  1. SYNTHROID [Suspect]
     Indication: HYPOTHYROIDISM
     Dates: start: 2009
  2. CYTOMEL [Suspect]
     Indication: THYROID DISORDER
  3. ALLOPURINOL [Suspect]
     Indication: GOUT

REACTIONS (2)
  - Food allergy [Unknown]
  - Eczema [Unknown]
